FAERS Safety Report 16532726 (Version 1)
Quarter: 2019Q3

REPORT INFORMATION
  Report Type: Spontaneous
  Country: US (occurrence: US)
  Receive Date: 20190704
  Receipt Date: 20190704
  Transmission Date: 20191004
  Serious: No
  Sender: FDA-Public Use
  Company Number: US-RECKITT BENCKISER HEALTHCARE INT LIMITED-RB-87842-2018

PATIENT
  Age: 34 Year
  Sex: Male

DRUGS (1)
  1. MUCINEX DM MAXIMUM STRENGTH [Suspect]
     Active Substance: DEXTROMETHORPHAN HYDROBROMIDE\GUAIFENESIN
     Indication: COUGH
     Dosage: 1 DF, QD
     Route: 065

REACTIONS (11)
  - Feeling jittery [Unknown]
  - Gait disturbance [Unknown]
  - Feeling abnormal [Unknown]
  - Dyspnoea [Unknown]
  - Somnolence [Recovered/Resolved]
  - Thinking abnormal [Recovered/Resolved]
  - Vision blurred [Recovered/Resolved]
  - Feeling drunk [Recovered/Resolved]
  - Product use complaint [Recovered/Resolved]
  - Pruritus [Recovered/Resolved]
  - Product complaint [Recovered/Resolved]
